FAERS Safety Report 6295846-1 (Version None)
Quarter: 2009Q3

REPORT INFORMATION
  Report Type: 
  Country: None (occurrence: None)
  Receive Date: 20090804
  Receipt Date: 20090729
  Transmission Date: 20100115
  Serious: Yes (Hospitalization)
  Sender: FDA-Public Use
  Company Number: GB-ROCHE-617747

PATIENT
  Sex: Male
  Weight: 68.5 kg

DRUGS (2)
  1. CAPECITABINE [Suspect]
     Indication: COLON CANCER
     Dosage: RECENT DOSE: 17 FEB 2009 THERAPY INTERRUPTED CYCLE NO: 02
     Route: 048
     Dates: start: 20090115, end: 20090217
  2. BEVACIZUMAB [Suspect]
     Indication: COLON CANCER
     Dosage: RECENT DOSE: 05 FEB 2009 THERAPY INTERRUPTED CYCLE NO: 02
     Route: 042
     Dates: start: 20090115, end: 20090205

REACTIONS (4)
  - ATRIAL FIBRILLATION [None]
  - DIARRHOEA [None]
  - RENAL FAILURE ACUTE [None]
  - VOMITING [None]
